FAERS Safety Report 5597802-5 (Version None)
Quarter: 2007Q4

REPORT INFORMATION
  Report Type: 
  Country: None (occurrence: None)
  Receive Date: 20071221
  Receipt Date: 20070622
  Transmission Date: 20080405
  Serious: Yes (Hospitalization)
  Sender: FDA-Public Use
  Company Number: US200706006145

PATIENT
  Age: 56 Year
  Sex: Male

DRUGS (4)
  1. HUMALOG [Suspect]
  2. BYETTA [Concomitant]
  3. ACTOS [Concomitant]
  4. LANTUS [Concomitant]

REACTIONS (9)
  - ABNORMAL BEHAVIOUR [None]
  - ARTHRITIS [None]
  - BACK DISORDER [None]
  - BLOOD GLUCOSE DECREASED [None]
  - BLOOD GLUCOSE INCREASED [None]
  - BURSITIS [None]
  - GLAUCOMA [None]
  - LOSS OF CONSCIOUSNESS [None]
  - TREMOR [None]
